FAERS Safety Report 21034297 (Version 2)
Quarter: 2023Q2

REPORT INFORMATION
  Report Type: Spontaneous
  Country: SI (occurrence: SI)
  Receive Date: 20220701
  Receipt Date: 20230505
  Transmission Date: 20230721
  Serious: Yes (Hospitalization, Other)
  Sender: FDA-Public Use
  Company Number: None

PATIENT
  Age: 20 Year
  Sex: Female

DRUGS (8)
  1. LEMTRADA [Suspect]
     Active Substance: ALEMTUZUMAB
     Indication: Relapsing-remitting multiple sclerosis
     Dosage: 12 MG
     Route: 041
     Dates: start: 201812
  2. LEMTRADA [Suspect]
     Active Substance: ALEMTUZUMAB
     Indication: Dermatitis atopic
     Dosage: 12 MG
     Route: 041
     Dates: start: 201902
  3. LEMTRADA [Suspect]
     Active Substance: ALEMTUZUMAB
     Dosage: 1 DF
     Route: 041
     Dates: start: 20200210, end: 20210212
  4. CETIXIN [Concomitant]
     Dosage: 10 MG
     Route: 048
  5. ESOMEPRAZOLE MAGNESIUM [Concomitant]
     Active Substance: ESOMEPRAZOLE MAGNESIUM
     Dosage: 20 MG
  6. EUTHYROX [Concomitant]
     Active Substance: LEVOTHYROXINE SODIUM
     Dosage: 75 UG, 3 DAYS A WEEK
     Route: 048
  7. EUTHYROX [Concomitant]
     Active Substance: LEVOTHYROXINE SODIUM
     Dosage: 150 UG, 4 DAYS A WEEK
     Route: 048
  8. NAPROXEN SODIUM [Concomitant]
     Active Substance: NAPROXEN SODIUM
     Route: 048

REACTIONS (14)
  - Haemophagocytic lymphohistiocytosis [Recovered/Resolved]
  - Pyrexia [Recovered/Resolved]
  - Hepatosplenomegaly [Recovered/Resolved]
  - Hyperferritinaemia [Recovered/Resolved]
  - Hypertriglyceridaemia [Recovered/Resolved]
  - Bicytopenia [Recovered/Resolved]
  - Inflammation [Recovered/Resolved]
  - Autoimmune thyroiditis [Unknown]
  - Rash [Recovered/Resolved]
  - Chest pain [Recovered/Resolved]
  - Hypokalaemia [Recovered/Resolved]
  - Cough [Recovered/Resolved]
  - Thrombocytopenia [Recovered/Resolved]
  - COVID-19 [Unknown]

NARRATIVE: CASE EVENT DATE: 20180701
